FAERS Safety Report 10564614 (Version 1)
Quarter: 2014Q4

REPORT INFORMATION
  Report Type: Spontaneous
  Country: US (occurrence: US)
  Receive Date: 20141104
  Receipt Date: 20141104
  Transmission Date: 20150529
  Serious: Yes (Hospitalization, Other)
  Sender: FDA-Public Use
  Company Number: US-MALLINCKRODT-T201402195

PATIENT
  Sex: Male

DRUGS (2)
  1. FENTANYL CITRATE. [Suspect]
     Active Substance: FENTANYL CITRATE
     Indication: CANCER PAIN
     Dosage: 1600 ?G, Q 6 HRS
     Route: 048
     Dates: start: 2012
  2. FENTANYL CITRATE. [Suspect]
     Active Substance: FENTANYL CITRATE
     Dosage: 1600 UG, Q 4 HRS
     Route: 048
     Dates: end: 201404

REACTIONS (4)
  - Drug withdrawal syndrome [Unknown]
  - Drug dependence [Unknown]
  - Inappropriate schedule of drug administration [Unknown]
  - Drug tolerance [Unknown]

NARRATIVE: CASE EVENT DATE: 2014
